FAERS Safety Report 9660462 (Version 2)
Quarter: 2013Q4

REPORT INFORMATION
  Report Type: Spontaneous
  Country: US (occurrence: US)
  Receive Date: 20131031
  Receipt Date: 20131105
  Transmission Date: 20140711
  Serious: No
  Sender: FDA-Public Use
  Company Number: US-009507513-1310USA014036

PATIENT
  Age: 73 Year
  Sex: Female
  Weight: 92.97 kg

DRUGS (9)
  1. OXYTROL FOR WOMEN [Suspect]
     Indication: PRODUCT USED FOR UNKNOWN INDICATION
     Dosage: 1 DF, Q4D
     Route: 062
     Dates: start: 20130907, end: 20130916
  2. SYNTHROID [Concomitant]
     Indication: THYROIDECTOMY
     Dosage: UNK, UNKNOWN
  3. SALAGEN TABLETS [Concomitant]
     Indication: SJOGREN^S SYNDROME
     Dosage: UNK, UNKNOWN
  4. ASPIRIN [Concomitant]
     Indication: CARDIAC ABLATION
     Dosage: UNK, UNKNOWN
  5. CRESTOR [Concomitant]
     Indication: PRODUCT USED FOR UNKNOWN INDICATION
     Dosage: UNK, UNKNOWN
  6. CENTRUM SILVER [Concomitant]
     Indication: PRODUCT USED FOR UNKNOWN INDICATION
     Dosage: UNK, UNKNOWN
  7. CALTRATE (CALCIUM CARBONATE) [Concomitant]
     Indication: PRODUCT USED FOR UNKNOWN INDICATION
     Dosage: UNK, UNKNOWN
  8. MAGNESIUM (UNSPECIFIED) [Concomitant]
     Indication: PRODUCT USED FOR UNKNOWN INDICATION
     Dosage: UNK, UNKNOWN
  9. KRILL OIL [Concomitant]
     Indication: PRODUCT USED FOR UNKNOWN INDICATION
     Dosage: UNK, UNKNOWN

REACTIONS (4)
  - Application site erosion [Unknown]
  - Application site rash [Recovered/Resolved]
  - Pruritus [Recovered/Resolved]
  - Drug effect decreased [Unknown]
